FAERS Safety Report 24307914 (Version 6)
Quarter: 2024Q4

REPORT INFORMATION
  Report Type: Spontaneous
  Country: CO (occurrence: CO)
  Receive Date: 20240911
  Receipt Date: 20241205
  Transmission Date: 20250115
  Serious: No
  Sender: PFIZER
  Company Number: CO-PFIZER INC-PV202400117984

PATIENT
  Age: 4 Year
  Sex: Female

DRUGS (1)
  1. GENOTROPIN [Suspect]
     Active Substance: SOMATROPIN
     Dosage: 0.3 MG, DAILY
     Route: 058

REACTIONS (7)
  - Device mechanical issue [Unknown]
  - Device use error [Unknown]
  - Device use issue [Unknown]
  - Wrong technique in device usage process [Unknown]
  - Off label use of device [Unknown]
  - Product prescribing error [Unknown]
  - Drug dose omission by device [Unknown]

NARRATIVE: CASE EVENT DATE: 20240905
